FAERS Safety Report 18623597 (Version 5)
Quarter: 2022Q3

REPORT INFORMATION
  Report Type: Spontaneous
  Country: US (occurrence: US)
  Receive Date: 20201216
  Receipt Date: 20220902
  Transmission Date: 20221026
  Serious: Yes (Hospitalization, Other)
  Sender: FDA-Public Use
  Company Number: US-PFIZER INC-2020495039

PATIENT
  Age: 82 Year
  Sex: Female
  Weight: 57.15 kg

DRUGS (2)
  1. IBRANCE [Suspect]
     Active Substance: PALBOCICLIB
     Indication: Breast cancer metastatic
     Dosage: 125 MG, ONCE DAILY FOR 21 DAYS THEN OFF 7 DAYS
     Dates: start: 2020
  2. IBRANCE [Suspect]
     Active Substance: PALBOCICLIB
     Dosage: 125 MG, CYCLIC (125MG, EVERY EVENING; 21 DAYS ON, OFF 7 DAYS)

REACTIONS (10)
  - Functional gastrointestinal disorder [Unknown]
  - Near death experience [Unknown]
  - Intentional product misuse [Unknown]
  - Product packaging issue [Unknown]
  - Poor quality product administered [Unknown]
  - Surgery [Unknown]
  - Arthritis [Not Recovered/Not Resolved]
  - Alopecia [Unknown]
  - Scar [Unknown]
  - Balance disorder [Unknown]

NARRATIVE: CASE EVENT DATE: 20200601
